FAERS Safety Report 12548364 (Version 1)
Quarter: 2016Q3

REPORT INFORMATION
  Report Type: Report from Study
  Country: US (occurrence: US)
  Receive Date: 20160712
  Receipt Date: 20160712
  Transmission Date: 20161109
  Serious: Yes (Other)
  Sender: FDA-Public Use
  Company Number: US-BAYER-2015-170325

PATIENT
  Age: 60 Year
  Sex: Female
  Weight: 96.6 kg

DRUGS (7)
  1. ADEMPAS [Suspect]
     Active Substance: RIOCIGUAT
     Indication: PULMONARY ARTERIAL HYPERTENSION
     Dosage: UNK
     Route: 048
  2. OPSUMIT [Concomitant]
     Active Substance: MACITENTAN
  3. XARELTO [Suspect]
     Active Substance: RIVAROXABAN
     Dosage: UNK
  4. COUMADIN [Concomitant]
     Active Substance: WARFARIN SODIUM
     Dosage: UNK
  5. ADEMPAS [Suspect]
     Active Substance: RIOCIGUAT
     Indication: PULMONARY ARTERIAL HYPERTENSION
     Dosage: 2.5 MG, TID
     Route: 048
  6. ADEMPAS [Suspect]
     Active Substance: RIOCIGUAT
     Indication: PULMONARY ARTERIAL HYPERTENSION
     Dosage: 1 MG, TID
     Route: 048
     Dates: start: 20150408
  7. ADEMPAS [Suspect]
     Active Substance: RIOCIGUAT
     Indication: PULMONARY ARTERIAL HYPERTENSION
     Dosage: 2.5 MG, TID
     Route: 048

REACTIONS (15)
  - Deafness [None]
  - Fatigue [None]
  - Malaise [None]
  - Flatulence [None]
  - Epistaxis [None]
  - Cough [None]
  - Migraine [None]
  - Muscle spasms [None]
  - Lung disorder [None]
  - Lung disorder [Not Recovered/Not Resolved]
  - Chills [None]
  - Feeling hot [None]
  - Abdominal discomfort [None]
  - Nasopharyngitis [None]
  - Dizziness [None]

NARRATIVE: CASE EVENT DATE: 201509
